FAERS Safety Report 7235105-3 (Version None)
Quarter: 2011Q1

REPORT INFORMATION
  Report Type: 
  Country: None (occurrence: None)
  Receive Date: 20110120
  Receipt Date: 20110105
  Transmission Date: 20110831
  Serious: No
  Sender: FDA-Public Use
  Company Number: US-B.I. PHARMACEUTICALS,INC./RIDGEFIELD-2011-BP-00647BP

PATIENT
  Age: 75 Year
  Sex: Female

DRUGS (3)
  1. COMBIVENT [Suspect]
  2. PREVACID [Suspect]
  3. ATROVENT [Suspect]
     Indication: NASOPHARYNGITIS

REACTIONS (1)
  - DYSPHONIA [None]
